FAERS Safety Report 18531115 (Version 1)
Quarter: 2020Q4

REPORT INFORMATION
  Report Type: Spontaneous
  Country: BR (occurrence: BR)
  Receive Date: 20201122
  Receipt Date: 20201122
  Transmission Date: 20210114
  Serious: Yes (Other)
  Sender: FDA-Public Use
  Company Number: NVSC2020BR305876

PATIENT
  Age: 76 Year
  Sex: Female

DRUGS (3)
  1. TAMOXIFEN [Suspect]
     Active Substance: TAMOXIFEN
     Indication: BREAST CANCER METASTATIC
     Dosage: UNK
     Route: 065
  2. PACLITAXEL. [Suspect]
     Active Substance: PACLITAXEL
     Indication: BREAST CANCER METASTATIC
     Dosage: UNK (FIRST?LINE CHEMOTHERAPY, UNDERWENT 23 WEEKLY DOSES)
     Route: 065
     Dates: end: 20160831
  3. ANASTROZOLE. [Suspect]
     Active Substance: ANASTROZOLE
     Indication: BREAST CANCER METASTATIC
     Dosage: UNK
     Route: 065

REACTIONS (12)
  - Metastases to bone [Unknown]
  - Ascites [Unknown]
  - Bone lesion [Unknown]
  - Metastases to lung [Unknown]
  - Breast cancer recurrent [Unknown]
  - Second primary malignancy [Unknown]
  - Gait disturbance [Unknown]
  - Abdominal pain [Unknown]
  - Skin cancer [Unknown]
  - Skin mass [Unknown]
  - Axillary mass [Unknown]
  - Pleural effusion [Unknown]

NARRATIVE: CASE EVENT DATE: 201604
